FAERS Safety Report 12138246 (Version 3)
Quarter: 2016Q2

REPORT INFORMATION
  Report Type: Report from Study
  Country: US (occurrence: US)
  Receive Date: 20160302
  Receipt Date: 20160630
  Transmission Date: 20160815
  Serious: Yes (Hospitalization, Other)
  Sender: FDA-Public Use
  Company Number: US-ARIAD PHARMACEUTICALS, INC-2016US005999

PATIENT
  Age: 25 Year
  Sex: Male

DRUGS (3)
  1. ICLUSIG [Suspect]
     Active Substance: PONATINIB
     Dosage: UNK
     Route: 048
     Dates: start: 20160108
  2. ICLUSIG [Suspect]
     Active Substance: PONATINIB
     Dosage: 15 MG, QD
     Route: 048
     Dates: start: 20160606
  3. ICLUSIG [Suspect]
     Active Substance: PONATINIB
     Indication: CHRONIC MYELOID LEUKAEMIA
     Dosage: 45 MG, QD
     Route: 048
     Dates: start: 20150205

REACTIONS (14)
  - Transplant [Recovered/Resolved]
  - Bicytopenia [Unknown]
  - Chest pain [Unknown]
  - Blast crisis in myelogenous leukaemia [Unknown]
  - Abdominal pain upper [Unknown]
  - Speech disorder [Unknown]
  - Generalised oedema [Unknown]
  - Ascites [Unknown]
  - Pyelonephritis [Unknown]
  - Pancreatitis [Recovered/Resolved]
  - Cytokine release syndrome [Unknown]
  - Gastritis [Unknown]
  - Liver function test abnormal [Unknown]
  - Neutropenic sepsis [Unknown]

NARRATIVE: CASE EVENT DATE: 20160128
